FAERS Safety Report 5310236-3 (Version None)
Quarter: 2007Q2

REPORT INFORMATION
  Report Type: 
  Country: None (occurrence: None)
  Receive Date: 20070427
  Receipt Date: 20070416
  Transmission Date: 20071010
  Serious: No
  Sender: FDA-Public Use
  Company Number: AUWYE486318APR07

PATIENT
  Sex: Female

DRUGS (2)
  1. EFFEXOR XR [Suspect]
     Indication: ANXIETY
     Route: 048
     Dates: start: 20060101
  2. EFFEXOR XR [Suspect]
     Route: 048

REACTIONS (3)
  - DRUG DEPENDENCE [None]
  - DRUG WITHDRAWAL SYNDROME [None]
  - TINNITUS [None]
